FAERS Safety Report 9470576 (Version 1)
Quarter: 2013Q3

REPORT INFORMATION
  Report Type: Spontaneous
  Country: FI (occurrence: FI)
  Receive Date: 20130822
  Receipt Date: 20130822
  Transmission Date: 20140515
  Serious: Yes (Hospitalization, Other)
  Sender: FDA-Public Use
  Company Number: FI-009507513-1308FIN005454

PATIENT
  Age: 78 Year
  Sex: Male

DRUGS (24)
  1. COZAAR [Suspect]
     Indication: HYPERTENSION
     Dosage: 1 DF/D
     Route: 048
  2. RIFAMPIN [Suspect]
     Indication: STAPHYLOCOCCAL INFECTION
     Dosage: 600 MG/D
     Route: 048
     Dates: start: 20130618, end: 20130723
  3. AMLODIPINE [Suspect]
     Indication: HYPERTENSION
     Dosage: 10 MG/D
     Route: 048
  4. PHYSIOTENS [Concomitant]
     Indication: HYPERTENSION
     Dosage: 0.2 MG/D
     Route: 048
  5. SELECTOL [Concomitant]
     Dosage: 400 MG/D
     Route: 048
  6. SIMVASTATIN [Concomitant]
     Dosage: 80 MG/D
     Route: 048
  7. CLEXANE (ENOXAPARIN SODIUM) [Concomitant]
     Dosage: 40 MG/D
     Route: 058
  8. NOVORAPID [Concomitant]
     Route: 058
  9. LEVEMIR [Concomitant]
     Dosage: 50 IU/D
     Route: 058
  10. MOBIC [Concomitant]
     Dosage: 15 MG/D
     Route: 048
  11. TARGINIQ [Concomitant]
     Dosage: 4 DF/D
     Route: 048
  12. PAMOL [Concomitant]
     Dosage: 3 G/D
     Route: 048
  13. TRIPTYL [Concomitant]
     Route: 048
  14. OMEPRAZOLE [Concomitant]
     Dosage: 40 MG/D
     Route: 048
  15. PRIMPERAN [Concomitant]
     Dosage: 20 MG/D
     Route: 048
  16. PEGORION [Concomitant]
     Dosage: /N
     Route: 048
  17. KALEORID [Concomitant]
     Dosage: 2 G/D
     Route: 048
  18. OBSIDAN (FERROUS GLYCINE SULFATE) [Concomitant]
     Dosage: 100 MG/D
     Route: 048
  19. FLOXACILLIN [Concomitant]
     Indication: STAPHYLOCOCCAL INFECTION
     Dosage: (500 MG 2X3)
     Route: 048
  20. PROSCAR [Concomitant]
     Dosage: 5 MG/D
     Route: 048
  21. OXANEST [Concomitant]
     Dosage: /N
     Route: 058
  22. PRIMPERAN [Concomitant]
     Dosage: /N
  23. OXYNORM [Concomitant]
     Dosage: /N
     Route: 048
  24. LACTULOSE [Concomitant]
     Dosage: /N
     Route: 048

REACTIONS (4)
  - Cerebral haemorrhage [Not Recovered/Not Resolved]
  - Hemiparesis [Not Recovered/Not Resolved]
  - Blood pressure increased [Not Recovered/Not Resolved]
  - Drug interaction [Not Recovered/Not Resolved]
